FAERS Safety Report 7429843-7 (Version None)
Quarter: 2011Q2

REPORT INFORMATION
  Report Type: 
  Country: None (occurrence: None)
  Receive Date: 20110421
  Receipt Date: 20110415
  Transmission Date: 20111010
  Serious: Yes (Other)
  Sender: FDA-Public Use
  Company Number: CA-NAPPMUNDI-CAN-2011-0001844

PATIENT
  Age: 25 Year
  Sex: Female

DRUGS (2)
  1. DILAUDID [Suspect]
     Indication: PRODUCT USED FOR UNKNOWN INDICATION
     Route: 045
  2. MORPHINE SULFATE [Suspect]
     Indication: PRODUCT USED FOR UNKNOWN INDICATION
     Route: 065

REACTIONS (14)
  - DRUG DEPENDENCE [None]
  - DRUG TOLERANCE INCREASED [None]
  - DECREASED APPETITE [None]
  - VOMITING [None]
  - CHILLS [None]
  - DRUG WITHDRAWAL SYNDROME [None]
  - CACHEXIA [None]
  - WEIGHT DECREASED [None]
  - PALLOR [None]
  - SUBSTANCE ABUSE [None]
  - NEGLECT OF PERSONAL APPEARANCE [None]
  - EUPHORIC MOOD [None]
  - HYPERHIDROSIS [None]
  - ASTHENIA [None]
